FAERS Safety Report 4995268-7 (Version None)
Quarter: 2006Q2

REPORT INFORMATION
  Report Type: 
  Country: None (occurrence: None)
  Receive Date: 20060503
  Receipt Date: 20060418
  Transmission Date: 20061013
  Serious: Yes (Death)
  Sender: FDA-Public Use
  Company Number: 2006S1002787

PATIENT
  Age: 51 Year
  Sex: Female

DRUGS (17)
  1. CLOZAPINE [Suspect]
     Indication: SCHIZOAFFECTIVE DISORDER
     Dosage: 300 MG; QD; ORAL
     Route: 048
     Dates: end: 20060301
  2. RISEDRONATE SODIUM [Concomitant]
  3. PROMETHAZINE [Concomitant]
  4. DEXTROPROPOXYPHENE HYDROCHLORIDE [Concomitant]
  5. FENTANYL [Concomitant]
  6. CLARITHROMYCIN [Concomitant]
  7. METOCLOPRAMIDE [Concomitant]
  8. LUNESTA [Concomitant]
  9. SPIRONOLACTONE [Concomitant]
  10. LEVETIRACETAM [Concomitant]
  11. CALCIUM CARBONATE [Concomitant]
  12. SERTRALINE [Concomitant]
  13. LEVOTHYROXINE SODIUM [Concomitant]
  14. LYRICA [Concomitant]
  15. ALPRAZOLAM [Concomitant]
  16. MAGNESIUM [Concomitant]
  17. TOLTERODINE TARTRATE [Concomitant]

REACTIONS (1)
  - DEATH [None]
